FAERS Safety Report 12631837 (Version 2)
Quarter: 2016Q3

REPORT INFORMATION
  Report Type: Spontaneous
  Country: US (occurrence: US)
  Receive Date: 20160808
  Receipt Date: 20160808
  Transmission Date: 20161109
  Serious: No
  Sender: FDA-Public Use
  Company Number: US-BEH-2016061208

PATIENT
  Sex: Female
  Weight: 64 kg

DRUGS (20)
  1. HIZENTRA [Suspect]
     Active Substance: HUMAN IMMUNOGLOBULIN G
     Indication: IMMUNODEFICIENCY COMMON VARIABLE
     Route: 058
     Dates: start: 20110304
  2. ACETAMINOPHEN. [Concomitant]
     Active Substance: ACETAMINOPHEN
  3. DIPHENHYDRAMINE. [Concomitant]
     Active Substance: DIPHENHYDRAMINE
  4. ZYRTEC [Concomitant]
     Active Substance: CETIRIZINE HYDROCHLORIDE
  5. ZETIA [Concomitant]
     Active Substance: EZETIMIBE
  6. VENTOLIN [Concomitant]
     Active Substance: ALBUTEROL SULFATE
  7. CEFUROXIME. [Concomitant]
     Active Substance: CEFUROXIME
  8. PRILOSEC [Concomitant]
     Active Substance: OMEPRAZOLE MAGNESIUM
  9. AMLODIPINE [Concomitant]
     Active Substance: AMLODIPINE BESYLATE
  10. DORZOLAMIDE [Concomitant]
     Active Substance: DORZOLAMIDE
  11. ZONISAMIDE. [Concomitant]
     Active Substance: ZONISAMIDE
  12. DULERA [Concomitant]
     Active Substance: FORMOTEROL FUMARATE DIHYDRATE\MOMETASONE FUROATE
  13. CARAC [Concomitant]
     Active Substance: FLUOROURACIL
  14. LOTEMAX [Concomitant]
     Active Substance: LOTEPREDNOL ETABONATE
  15. METOFORMIN [Concomitant]
  16. EPIPEN [Concomitant]
     Active Substance: EPINEPHRINE
  17. CELEBREX [Concomitant]
     Active Substance: CELECOXIB
  18. LIDOCAINE. [Concomitant]
     Active Substance: LIDOCAINE
  19. ZYFLO [Concomitant]
     Active Substance: ZILEUTON
  20. SINGULAIR [Concomitant]
     Active Substance: MONTELUKAST SODIUM

REACTIONS (2)
  - Infection [Unknown]
  - Stomatitis [Unknown]
